FAERS Safety Report 26095705 (Version 1)
Quarter: 2025Q4

REPORT INFORMATION
  Report Type: Report from Study
  Country: US (occurrence: None)
  Receive Date: 20251127
  Receipt Date: 20251127
  Transmission Date: 20260118
  Serious: No
  Sender: APOTEX
  Company Number: US-APOTEX-2025AP033007

PATIENT

DRUGS (6)
  1. LACOSAMIDE [Suspect]
     Active Substance: LACOSAMIDE
     Indication: Trigeminal neuralgia
     Dosage: 200 MILLIGRAM, DILUTED IN 100 ML OF 0.9% SODIUM CHLORIDE QD, INFUSED OVER 20 TO 30 MIN
  2. LACOSAMIDE [Suspect]
     Active Substance: LACOSAMIDE
     Indication: Pain
  3. MAGNESIUM SULFATE [Concomitant]
     Active Substance: MAGNESIUM SULFATE
     Indication: Trigeminal neuralgia
     Dosage: 2 GRAM TOTAL; 2 X 1 G/100 ML IN 5% DEXTROSE IN WATER, 1-2 H AT A RATE OF 100-200 ML/H
  4. MAGNESIUM SULFATE [Concomitant]
     Active Substance: MAGNESIUM SULFATE
     Indication: Pain
  5. METHOCARBAMOL [Concomitant]
     Active Substance: METHOCARBAMOL
     Indication: Trigeminal neuralgia
     Dosage: 1000 MILLIGRAM IN 100 ML OF 0.9% SODIUM CHLORIDE, ADMINISTERED OVER 30 MIN
  6. METHOCARBAMOL [Concomitant]
     Active Substance: METHOCARBAMOL
     Indication: Pain

REACTIONS (2)
  - Vomiting [Unknown]
  - Nausea [Unknown]
